FAERS Safety Report 7015890-6 (Version None)
Quarter: 2010Q3

REPORT INFORMATION
  Report Type: 
  Country: None (occurrence: None)
  Receive Date: 20100927
  Receipt Date: 20100301
  Transmission Date: 20110219
  Serious: No
  Sender: FDA-Public Use
  Company Number: US-ASTRAZENECA-2010SE08771

PATIENT
  Sex: Female

DRUGS (9)
  1. ARIMIDEX [Suspect]
     Route: 048
  2. SIMALAX [Concomitant]
     Indication: PARKINSON'S DISEASE
  3. LOTREL [Concomitant]
     Indication: HYPERTENSION
  4. REMERON [Concomitant]
     Indication: NERVOUSNESS
  5. ZANTAC [Concomitant]
  6. ASPIRIN [Concomitant]
  7. FISH OIL [Concomitant]
  8. VITAMIN B-12 [Concomitant]
  9. CALCIUM [Concomitant]

REACTIONS (1)
  - MEMORY IMPAIRMENT [None]
